FAERS Safety Report 5375536-X (Version None)
Quarter: 2007Q2

REPORT INFORMATION
  Report Type: 
  Country: None (occurrence: None)
  Receive Date: 20070629
  Receipt Date: 20070620
  Transmission Date: 20071010
  Serious: Yes (Other)
  Sender: FDA-Public Use
  Company Number: US-ALLERGAN-0704241US

PATIENT
  Sex: Female

DRUGS (1)
  1. BOTOX [Suspect]
     Indication: FACIAL SPASM
     Dosage: UNK, SINGLE
     Route: 030
     Dates: start: 20070413, end: 20070413

REACTIONS (5)
  - BLINDNESS [None]
  - DRUG INEFFECTIVE [None]
  - EYELID OEDEMA [None]
  - HAEMATOMA [None]
  - MUSCLE INJURY [None]
